FAERS Safety Report 11572316 (Version 3)
Quarter: 2015Q4

REPORT INFORMATION
  Report Type: Spontaneous
  Country: US (occurrence: US)
  Receive Date: 20150916
  Receipt Date: 20151104
  Transmission Date: 20160304
  Serious: No
  Sender: FDA-Public Use
  Company Number: US-ELI_LILLY_AND_COMPANY-US200910002095

PATIENT
  Sex: Female

DRUGS (7)
  1. POSTURE D [Concomitant]
     Dosage: 600 MG, 3/D
  2. MULTIVITAMIN [Concomitant]
     Active Substance: VITAMINS
     Dosage: UNK, DAILY (1/D)
  3. FORTEO [Suspect]
     Active Substance: TERIPARATIDE
     Indication: OSTEOPOROSIS
     Dosage: 20 UG, DAILY (1/D)
  4. FORTEO [Suspect]
     Active Substance: TERIPARATIDE
     Dosage: 20 UG, QD
  5. LISINOPRIL. [Concomitant]
     Active Substance: LISINOPRIL
     Dosage: 40 MG, DAILY (1/D)
  6. FORTEO [Suspect]
     Active Substance: TERIPARATIDE
     Dosage: 20 UG, DAILY (1/D)
     Dates: start: 20100214
  7. NAPROSYN [Concomitant]
     Active Substance: NAPROXEN
     Dosage: 220 MG, DAILY (1/D)

REACTIONS (10)
  - Herpes zoster [Recovered/Resolved]
  - Pain [Unknown]
  - Back pain [Recovered/Resolved]
  - Fatigue [Not Recovered/Not Resolved]
  - Nausea [Not Recovered/Not Resolved]
  - Pigmentation disorder [Unknown]
  - Bone pain [Not Recovered/Not Resolved]
  - Gait disturbance [Unknown]
  - Arthralgia [Unknown]
  - Muscle spasms [Not Recovered/Not Resolved]
